FAERS Safety Report 25884113 (Version 1)
Quarter: 2025Q4

REPORT INFORMATION
  Report Type: Spontaneous
  Country: US (occurrence: US)
  Receive Date: 20251006
  Receipt Date: 20251006
  Transmission Date: 20260118
  Serious: Yes (Other)
  Sender: BRISTOL-MYERS SQUIBB COMPANY
  Company Number: US-BRISTOL-MYERS SQUIBB COMPANY-2025-135101

PATIENT
  Age: 76 Year
  Sex: Female
  Weight: 77.11 kg

DRUGS (1)
  1. LENALIDOMIDE [Suspect]
     Active Substance: LENALIDOMIDE
     Indication: Plasma cell myeloma
     Dosage: FREQUENCY: DAILY FOR 21 DAYS THEN 7 DAY
     Dates: end: 20250828

REACTIONS (1)
  - Spinal fracture [Recovered/Resolved]

NARRATIVE: CASE EVENT DATE: 20250715
